FAERS Safety Report 19845603 (Version 1)
Quarter: 2021Q3

REPORT INFORMATION
  Report Type: Spontaneous
  Country: US (occurrence: US)
  Receive Date: 20210917
  Receipt Date: 20210917
  Transmission Date: 20211014
  Serious: Yes (Other)
  Sender: FDA-Public Use
  Company Number: US-SA-2021SA304633

PATIENT
  Age: 40 Year
  Sex: Female

DRUGS (1)
  1. ZANTAC [Suspect]
     Active Substance: RANITIDINE HYDROCHLORIDE
     Indication: DYSPEPSIA
     Dosage: UNK, QD
     Dates: start: 198401, end: 202002

REACTIONS (6)
  - Hepatic cancer stage II [Unknown]
  - Small intestine carcinoma stage II [Unknown]
  - Renal cancer stage II [Unknown]
  - Gastrointestinal carcinoma [Unknown]
  - Testis cancer [Unknown]
  - Gastric cancer stage II [Unknown]

NARRATIVE: CASE EVENT DATE: 20050101
